FAERS Safety Report 11031636 (Version 1)
Quarter: 2015Q2

REPORT INFORMATION
  Report Type: Spontaneous
  Country: US (occurrence: US)
  Receive Date: 20150415
  Receipt Date: 20150415
  Transmission Date: 20150821
  Serious: No
  Sender: FDA-Public Use
  Company Number: US-SA-2014SA170649

PATIENT
  Sex: Female

DRUGS (11)
  1. AUGMENTIN [Concomitant]
     Active Substance: AMOXICILLIN\CLAVULANATE POTASSIUM
     Dosage: STRENGTH: 400/57 MGT
     Route: 048
     Dates: start: 20140308
  2. ASPIRIN. [Concomitant]
     Active Substance: ASPIRIN
     Route: 048
     Dates: start: 20080826
  3. TOPROL XL [Concomitant]
     Active Substance: METOPROLOL SUCCINATE
     Dosage: STRENGTH: 25 MG 24 HR TABLET
     Route: 048
     Dates: start: 20130719
  4. FOLIC ACID. [Concomitant]
     Active Substance: FOLIC ACID
     Route: 048
     Dates: start: 20050426
  5. TOPROL XL [Concomitant]
     Active Substance: METOPROLOL SUCCINATE
     Dosage: STRENGTH: 25 MG 24 HR TABLET
     Route: 048
     Dates: start: 20130812
  6. CALTRATE +D [Concomitant]
     Route: 048
  7. DEMEROL [Suspect]
     Active Substance: MEPERIDINE HYDROCHLORIDE
     Route: 048
  8. SYNTHROID [Concomitant]
     Active Substance: LEVOTHYROXINE SODIUM
     Dosage: STRENGTH 50 MCG
     Route: 048
     Dates: start: 20130830
  9. CYANOCOBALAMIN. [Concomitant]
     Active Substance: CYANOCOBALAMIN
     Dosage: INJECTION TWICE A MONTH?STRENGTH:1000MCG/ML
     Dates: start: 20141106
  10. OMEPRAZOLE. [Concomitant]
     Active Substance: OMEPRAZOLE
     Dosage: STRENGTH 40/1100 MG PER CAPSULE
     Route: 048
     Dates: start: 20141126
  11. TIKOSYN [Concomitant]
     Active Substance: DOFETILIDE
     Dosage: STRENGTH 125 MCG CAPSULE
     Route: 048
     Dates: start: 20140804

REACTIONS (1)
  - Drug hypersensitivity [Unknown]
